FAERS Safety Report 7971694 (Version 13)
Quarter: 2014Q3

REPORT INFORMATION
  Report Type: Report from Study
  Country: US (occurrence: US)
  Receive Date: 20110602
  Receipt Date: 20140717
  Transmission Date: 20150326
  Serious: Yes (Death, Hospitalization, Other)
  Sender: FDA-Public Use
  Company Number: US-BRISTOL-MYERS SQUIBB COMPANY-15780935

PATIENT
  Age: 72 Year
  Sex: Male
  Weight: 109 kg

DRUGS (26)
  1. MAALOX ANTACID [Concomitant]
     Active Substance: ALUMINUM HYDROXIDE\DIMETHICONE\MAGNESIUM HYDROXIDE
  2. LASIX [Concomitant]
     Active Substance: FUROSEMIDE
  3. ZOCOR [Concomitant]
     Active Substance: SIMVASTATIN
  4. IPILIMUMAB [Suspect]
     Active Substance: IPILIMUMAB
     Indication: MALIGNANT MELANOMA
     Dosage: LAST DOSE:18APR11?09MAY11,COURSES: 2?10MG/KGIV(INDUC THER)?10MG/KGIV(MAIN THER)?CY:21D?1170MG
     Route: 042
     Dates: start: 20110418
  5. DECADRON [Concomitant]
     Active Substance: DEXAMETHASONE
  6. DULCOLAX [Concomitant]
     Active Substance: BISACODYL OR DOCUSATE SODIUM
  7. OCEAN [Concomitant]
  8. DIFLUCAN [Concomitant]
     Active Substance: FLUCONAZOLE
  9. NAPROSYN [Concomitant]
     Active Substance: NAPROXEN
  10. ZANTAC [Concomitant]
     Active Substance: RANITIDINE HYDROCHLORIDE
  11. TUMS [Concomitant]
     Active Substance: CALCIUM CARBONATE
  12. FLOMAX [Concomitant]
     Active Substance: TAMSULOSIN HYDROCHLORIDE
  13. SEROQUEL [Concomitant]
     Active Substance: QUETIAPINE FUMARATE
  14. TOPROL XL [Concomitant]
     Active Substance: METOPROLOL SUCCINATE
  15. COMPAZINE [Concomitant]
     Active Substance: PROCHLORPERAZINE MALEATE
  16. ZOFRAN [Concomitant]
     Active Substance: ONDANSETRON HYDROCHLORIDE
  17. NEXIUM [Concomitant]
     Active Substance: ESOMEPRAZOLE MAGNESIUM
  18. MEGACE [Concomitant]
     Active Substance: MEGESTROL ACETATE
  19. MULTIVITAMINS [Concomitant]
     Active Substance: VITAMINS
  20. GLUCOSAMINE [Concomitant]
     Active Substance: GLUCOSAMINE
  21. CELEXA [Concomitant]
     Active Substance: CITALOPRAM HYDROBROMIDE
  22. ASPIRIN. [Concomitant]
     Active Substance: ASPIRIN
  23. POTASSIUM CHLORIDE. [Concomitant]
     Active Substance: POTASSIUM CHLORIDE
  24. FAMOTIDINE. [Concomitant]
     Active Substance: FAMOTIDINE
  25. TYLENOL [Concomitant]
     Active Substance: ACETAMINOPHEN
  26. LOVENOX [Concomitant]
     Active Substance: ENOXAPARIN SODIUM

REACTIONS (10)
  - Colitis [Unknown]
  - Gait disturbance [Not Recovered/Not Resolved]
  - Large intestine perforation [Fatal]
  - Dehydration [Recovered/Resolved]
  - Fatigue [Not Recovered/Not Resolved]
  - Dysphagia [Not Recovered/Not Resolved]
  - Hypoalbuminaemia [Unknown]
  - Sepsis [Fatal]
  - Muscular weakness [Recovering/Resolving]
  - Lymphocyte count decreased [Unknown]

NARRATIVE: CASE EVENT DATE: 20110419
